FAERS Safety Report 7668569-1 (Version None)
Quarter: 2011Q3

REPORT INFORMATION
  Report Type: 
  Country: None (occurrence: None)
  Receive Date: 20110808
  Receipt Date: 20110726
  Transmission Date: 20111222
  Serious: No
  Sender: FDA-Public Use
  Company Number: US-B.I. PHARMACEUTICALS,INC./RIDGEFIELD-2011-BP-18447BP

PATIENT
  Sex: Male

DRUGS (3)
  1. ALBUTEROL SULFATE AUTOHALER [Concomitant]
     Indication: ASTHMA
     Route: 055
  2. ADVIL LIQUI-GELS [Concomitant]
     Indication: HEADACHE
     Route: 048
  3. ZANTAC 150 [Suspect]
     Indication: DYSPEPSIA
     Route: 048
     Dates: start: 20100101

REACTIONS (1)
  - DRUG SCREEN POSITIVE [None]
